FAERS Safety Report 9813796 (Version 2)
Quarter: 2014Q1

REPORT INFORMATION
  Report Type: Spontaneous
  Country: US (occurrence: US)
  Receive Date: 20140113
  Receipt Date: 20140121
  Transmission Date: 20141002
  Serious: Yes (Death)
  Sender: FDA-Public Use
  Company Number: US-B.I. PHARMACEUTICALS,INC./RIDGEFIELD-2014-BI-01395BP

PATIENT
  Age: 79 Year
  Sex: Male

DRUGS (1)
  1. ADVAIR [Suspect]

REACTIONS (1)
  - Intracranial aneurysm [Fatal]
